FAERS Safety Report 8313269-8 (Version None)
Quarter: 2012Q2

REPORT INFORMATION
  Report Type: 
  Country: None (occurrence: None)
  Receive Date: 20120426
  Receipt Date: 20120415
  Transmission Date: 20120825
  Serious: Yes (Hospitalization)
  Sender: FDA-Public Use
  Company Number: IL-NOVOPROD-349214

PATIENT
  Age: 74 Year
  Sex: Male
  Weight: 84.8 kg

DRUGS (17)
  1. LANTUS [Concomitant]
     Indication: DIABETES MELLITUS
     Dosage: 10 IU, UNK
     Dates: start: 20100601, end: 20120305
  2. EZETIMIBE [Concomitant]
     Indication: DYSLIPIDAEMIA
     Dosage: 10 MG, UNK
     Dates: start: 20070101
  3. RAMIPRIL [Concomitant]
     Indication: HYPERTENSION
     Dosage: 1.25 MG, UNK
     Dates: start: 19950101
  4. METFORMIN HCL [Concomitant]
     Indication: DIABETES MELLITUS
     Dosage: 1700 MG, UNK
     Dates: start: 19930101
  5. XALATAN [Concomitant]
     Indication: GLAUCOMA
     Dosage: 1 UNK, UNK
     Dates: start: 19900101
  6. REPAGLINIDE [Concomitant]
     Indication: DIABETES MELLITUS
     Dosage: 2 MG, UNK
     Dates: start: 20110501, end: 20120305
  7. Q10 [Concomitant]
     Indication: PROPHYLAXIS
     Dosage: 60 MG, UNK
     Dates: start: 20030101
  8. ASPIRIN [Concomitant]
     Indication: PROPHYLAXIS
     Dosage: 100 MG, UNK
     Dates: start: 19860101
  9. ATENOLOL [Concomitant]
     Indication: HYPERTENSION
     Dosage: 1.25 MG, UNK
     Dates: start: 19950101
  10. FELODIPINE [Concomitant]
     Indication: HYPERTENSION
     Dosage: 10 MG, UNK
     Dates: start: 20110209
  11. OMEPRAZOLE [Concomitant]
     Indication: GASTRITIS
     Dosage: 20 MG, UNK
     Dates: start: 20000101
  12. LIRAGLUTIDE FLEXPEN [Suspect]
     Indication: TYPE 2 DIABETES MELLITUS
     Dosage: 1.8 MG, QD
     Route: 058
     Dates: start: 20110222
  13. MONOCORD [Concomitant]
     Indication: ANGINA PECTORIS
     Dosage: 50 MG, UNK
     Dates: start: 20000101
  14. VITAMIN C                          /00008001/ [Concomitant]
     Indication: PROPHYLAXIS
     Dosage: 1000 MG, UNK
     Dates: start: 20000101
  15. SIMVASTATIN [Concomitant]
     Indication: DYSLIPIDAEMIA
     Dosage: 20 MG, UNK
     Dates: start: 20000101
  16. OMEGA 3                            /01334101/ [Concomitant]
     Indication: PROPHYLAXIS
     Dosage: UNK
     Dates: start: 20030101
  17. ACARBOSE [Concomitant]
     Indication: DIABETES MELLITUS
     Dosage: 100 MG, UNK
     Dates: start: 20110501

REACTIONS (1)
  - ANGINA UNSTABLE [None]
